FAERS Safety Report 7824508-1 (Version None)
Quarter: 2011Q4

REPORT INFORMATION
  Report Type: 
  Country: None (occurrence: None)
  Receive Date: 20111019
  Receipt Date: 20111012
  Transmission Date: 20120403
  Serious: Yes (Congenital Anomaly)
  Sender: FDA-Public Use
  Company Number: GB-TEVA-304914ISR

PATIENT

DRUGS (23)
  1. CLARITHROMYCIN [Concomitant]
     Route: 064
     Dates: start: 20101201, end: 20101202
  2. ERYTHROMYCIN [Concomitant]
     Route: 064
     Dates: start: 20101221, end: 20101228
  3. UNIPHYL [Concomitant]
     Route: 064
  4. CEPHALEXIN [Concomitant]
     Route: 064
  5. IPRATROPIUM BROMIDE [Concomitant]
     Indication: ASTHMA
     Dosage: 500MCG/2ML
     Route: 064
  6. NASONEX [Concomitant]
     Route: 064
  7. PREDNISOLONE [Suspect]
     Route: 064
     Dates: start: 20110518, end: 20110526
  8. LORATADINE [Concomitant]
     Indication: SEASONAL ALLERGY
     Route: 064
  9. FLUTICASONE PROPIONATE/SALMETEROL [Concomitant]
     Indication: ASTHMA
     Dosage: 250MCG/25MG
     Route: 064
  10. ERYTHROMYCIN [Concomitant]
     Route: 064
     Dates: start: 20101202, end: 20101209
  11. MONTELUKAST SODIUM [Concomitant]
     Indication: ASTHMA
     Dosage: AT NIGHT
     Route: 064
  12. PREDNISOLONE [Suspect]
     Indication: ASTHMA
     Route: 064
     Dates: start: 20101201, end: 20101206
  13. VENTOLIN [Concomitant]
     Route: 064
  14. OMEPRAZOLE [Concomitant]
     Indication: GASTROOESOPHAGEAL REFLUX DISEASE
     Route: 064
  15. MOMETASONE FUROATE [Concomitant]
     Indication: HYPERSENSITIVITY
     Route: 064
  16. BETAMETHASONE VALERATE [Concomitant]
     Route: 064
  17. PREDNISOLONE [Suspect]
     Route: 064
     Dates: start: 20110113, end: 20110118
  18. ALBUTEROL [Concomitant]
     Dosage: 5MG/2.5ML, 1 DOSE 3 TO 4 TIMES A DAY
     Route: 064
  19. PREDNISOLONE [Suspect]
     Route: 064
     Dates: start: 20110208, end: 20110304
  20. PREDNISOLONE [Suspect]
     Route: 064
     Dates: start: 20110427
  21. CEPHALEXIN [Concomitant]
     Route: 064
     Dates: start: 20110104, end: 20110112
  22. NYSTATIN [Concomitant]
     Indication: CANDIDIASIS
     Dosage: 100,000 UNITS/ML
     Route: 064
  23. FUSIDIC ACID [Concomitant]
     Route: 064

REACTIONS (2)
  - CLEFT PALATE [None]
  - INTESTINAL MALROTATION [None]
